FAERS Safety Report 7018100-9 (Version None)
Quarter: 2010Q3

REPORT INFORMATION
  Report Type: 
  Country: None (occurrence: None)
  Receive Date: 20100928
  Receipt Date: 20100928
  Transmission Date: 20110219
  Serious: Yes (Death, Hospitalization)
  Sender: FDA-Public Use
  Company Number: PHHO2010TR11530

PATIENT
  Sex: Male
  Weight: 50 kg

DRUGS (1)
  1. EXELON [Suspect]
     Indication: DEMENTIA ALZHEIMER'S TYPE
     Dosage: 18 MG, ONE PATCH PER DAY
     Route: 062
     Dates: start: 20091222

REACTIONS (5)
  - CARDIO-RESPIRATORY ARREST [None]
  - FALL [None]
  - FEMUR FRACTURE [None]
  - POST PROCEDURAL PULMONARY EMBOLISM [None]
  - SURGERY [None]
